FAERS Safety Report 10459953 (Version 1)
Quarter: 2014Q3

REPORT INFORMATION
  Report Type: Spontaneous
  Country: FR (occurrence: FR)
  Receive Date: 20140917
  Receipt Date: 20140917
  Transmission Date: 20150326
  Serious: Yes (Other)
  Sender: FDA-Public Use
  Company Number: FR-SA-2014SA123584

PATIENT
  Age: 67 Year
  Sex: Male

DRUGS (6)
  1. APROVEL [Suspect]
     Active Substance: IRBESARTAN
     Route: 065
  2. RIFAMPICIN [Suspect]
     Active Substance: RIFAMPIN
     Route: 065
  3. TARGOCID [Suspect]
     Active Substance: TEICOPLANIN
     Route: 065
  4. LOVENOX [Suspect]
     Active Substance: ENOXAPARIN SODIUM
     Route: 065
  5. TRIFLUCAN [Suspect]
     Active Substance: FLUCONAZOLE
     Route: 065
  6. ARIXTRA [Suspect]
     Active Substance: FONDAPARINUX SODIUM
     Route: 065

REACTIONS (1)
  - Dermatitis exfoliative [Unknown]

NARRATIVE: CASE EVENT DATE: 200910
